FAERS Safety Report 23071301 (Version 1)
Quarter: 2023Q4

REPORT INFORMATION
  Report Type: Spontaneous
  Country: CN (occurrence: CN)
  Receive Date: 20231016
  Receipt Date: 20231016
  Transmission Date: 20240109
  Serious: Yes (Other)
  Sender: FDA-Public Use
  Company Number: None

PATIENT
  Age: 46 Year
  Sex: Male
  Weight: 70 kg

DRUGS (2)
  1. MANNITOL [Suspect]
     Active Substance: MANNITOL
     Indication: Tendon injury
     Dosage: 250 MILLILITER (ML) (1BAG), ONE TIME IN ONE DAY (DOSAGE FORM: INJECTION)
     Route: 041
     Dates: start: 20230927, end: 20230927
  2. MANNITOL [Suspect]
     Active Substance: MANNITOL
     Indication: Muscle injury

REACTIONS (4)
  - Nasal congestion [Recovering/Resolving]
  - Hypoaesthesia [Recovering/Resolving]
  - Rash erythematous [Recovering/Resolving]
  - Pruritus [Recovering/Resolving]

NARRATIVE: CASE EVENT DATE: 20230927
